FAERS Safety Report 21588928 (Version 1)
Quarter: 2022Q4

REPORT INFORMATION
  Report Type: Report from Study
  Country: US (occurrence: US)
  Receive Date: 20221114
  Receipt Date: 20221114
  Transmission Date: 20230113
  Serious: No
  Sender: FDA-Public Use
  Company Number: US-ABBVIE-4163824

PATIENT
  Age: 59 Year
  Sex: Male

DRUGS (1)
  1. RINVOQ [Suspect]
     Active Substance: UPADACITINIB
     Indication: Rheumatoid arthritis
     Dosage: RINVOQ ER 15MG?FORM STRENGTH: 15 MILLIGRAM
     Route: 048
     Dates: start: 20220913

REACTIONS (6)
  - Productive cough [Unknown]
  - Burning sensation [Unknown]
  - Pain in extremity [Unknown]
  - Insomnia [Unknown]
  - Arthralgia [Recovered/Resolved]
  - Therapeutic product effect delayed [Unknown]

NARRATIVE: CASE EVENT DATE: 20221001
